FAERS Safety Report 18016490 (Version 1)
Quarter: 2020Q3

REPORT INFORMATION
  Report Type: Spontaneous
  Country: DE (occurrence: DE)
  Receive Date: 20200714
  Receipt Date: 20200714
  Transmission Date: 20201103
  Serious: Yes (Hospitalization, Other)
  Sender: FDA-Public Use
  Company Number: DE-TEVA-2020-DE-1799053

PATIENT
  Age: 71 Year
  Sex: Female

DRUGS (5)
  1. AMILORID/HYDROCHLOROTHIAZID [Suspect]
     Active Substance: AMILORIDE HYDROCHLORIDE\HYDROCHLOROTHIAZIDE
     Dosage: 5|50 MG, NK
  2. CARVEDILOL. [Concomitant]
     Active Substance: CARVEDILOL
     Dosage: 12.5 MILLIGRAM DAILY; 0?1?0?0
  3. LEVOTHYROXIN?NATRIUM [Concomitant]
     Active Substance: LEVOTHYROXINE SODIUM
     Dosage: 125 MICROGRAM DAILY; 1?0?0?0
  4. IRBESARTAN. [Concomitant]
     Active Substance: IRBESARTAN
     Dosage: 150 MILLIGRAM DAILY; 1?0?0?0
  5. URAPIDIL [Concomitant]
     Active Substance: URAPIDIL
     Dosage: 120 MILLIGRAM DAILY; 1?0?1?0

REACTIONS (7)
  - Muscular weakness [Unknown]
  - Asthenia [Unknown]
  - Fall [Unknown]
  - Syncope [Unknown]
  - Facial paresis [Unknown]
  - Salivary hypersecretion [Unknown]
  - Sleep disorder [Unknown]
